FAERS Safety Report 13706182 (Version 2)
Quarter: 2017Q3

REPORT INFORMATION
  Report Type: Spontaneous
  Country: IT (occurrence: IT)
  Receive Date: 20170630
  Receipt Date: 20170726
  Transmission Date: 20171127
  Serious: Yes (Other)
  Sender: FDA-Public Use
  Company Number: IT-PFIZER INC-2017280884

PATIENT
  Age: 62 Year
  Sex: Female
  Weight: 56 kg

DRUGS (2)
  1. ABRAXANE [Suspect]
     Active Substance: PACLITAXEL
     Indication: ADENOCARCINOMA PANCREAS
     Dosage: 185 MG, CYCLIC
     Route: 042
     Dates: start: 20160509, end: 20170317
  2. GEMCITABINE HYDROCHLORIDE. [Suspect]
     Active Substance: GEMCITABINE HYDROCHLORIDE
     Indication: ADENOCARCINOMA PANCREAS
     Dosage: 1500 MG, CYCLIC
     Route: 042
     Dates: start: 20160509, end: 20170317

REACTIONS (2)
  - Deep vein thrombosis [Unknown]
  - Oedema peripheral [Recovering/Resolving]

NARRATIVE: CASE EVENT DATE: 20160516
